FAERS Safety Report 10797513 (Version 1)
Quarter: 2015Q1

REPORT INFORMATION
  Report Type: Spontaneous
  Country: US (occurrence: US)
  Receive Date: 20150216
  Receipt Date: 20150216
  Transmission Date: 20150721
  Serious: Yes (Hospitalization)
  Sender: FDA-Public Use
  Company Number: US-MYLANLABS-2015M1004446

PATIENT

DRUGS (3)
  1. QUETIAPINE [Concomitant]
     Active Substance: QUETIAPINE
     Indication: BIPOLAR DISORDER
     Dosage: 0.5 MG/KG IN THE MORNING AND 1 MG/KG AT NIGHT
     Route: 065
  2. GUANFACINE. [Concomitant]
     Active Substance: GUANFACINE
     Indication: BIPOLAR DISORDER
     Dosage: IN THE MORNING
     Route: 065
  3. LITHIUM [Suspect]
     Active Substance: LITHIUM CARBONATE
     Indication: BIPOLAR DISORDER
     Dosage: 8.5 MG/KG IN THE MORNING AND 5.7 MG/KG AT NIGHT, UNCHANGED FOR 3 TO 4 YEARS
     Route: 065

REACTIONS (4)
  - Pleural effusion [Unknown]
  - Toxicity to various agents [Recovered/Resolved]
  - Acute kidney injury [Recovered/Resolved]
  - Dysarthria [Unknown]
